FAERS Safety Report 8331654-5 (Version None)
Quarter: 2012Q2

REPORT INFORMATION
  Report Type: 
  Country: None (occurrence: None)
  Receive Date: 20120502
  Receipt Date: 20111004
  Transmission Date: 20120825
  Serious: No
  Sender: FDA-Public Use
  Company Number: US-ASTRAZENECA-2011SE59775

PATIENT
  Age: 81 Year
  Sex: Female

DRUGS (1)
  1. BUDESONIDE [Suspect]
     Indication: ENTERITIS INFECTIOUS
     Route: 048
     Dates: start: 20110927

REACTIONS (2)
  - PRURITUS [None]
  - BURNING SENSATION [None]
